FAERS Safety Report 9319562 (Version 1)
Quarter: 2013Q2

REPORT INFORMATION
  Report Type: Spontaneous
  Country: GB (occurrence: GB)
  Receive Date: 20130530
  Receipt Date: 20130530
  Transmission Date: 20140414
  Serious: Yes (Other)
  Sender: FDA-Public Use
  Company Number: GB-ASTRAZENECA-2013SE35741

PATIENT
  Age: 51 Year
  Sex: Male

DRUGS (4)
  1. QUETIAPINE [Suspect]
     Route: 048
  2. PREGABALIN [Concomitant]
  3. SIMVASTATIN [Concomitant]
  4. VENLAFAXINE [Concomitant]

REACTIONS (1)
  - Thyroxine free decreased [Unknown]
